FAERS Safety Report 7904265-0 (Version None)
Quarter: 2011Q4

REPORT INFORMATION
  Report Type: 
  Country: None (occurrence: None)
  Receive Date: 20111109
  Receipt Date: 20111031
  Transmission Date: 20120403
  Serious: Yes (Hospitalization)
  Sender: FDA-Public Use
  Company Number: US-BAYER-2011-048360

PATIENT
  Age: 30 Year
  Sex: Female

DRUGS (7)
  1. RELPAX [Concomitant]
     Dosage: UNK
     Dates: start: 20090101
  2. ATENOLOL [Concomitant]
  3. YASMIN [Suspect]
     Dosage: UNK UNK, UNK
     Route: 048
     Dates: start: 20050101, end: 20090101
  4. NAPROXEN [Concomitant]
     Dosage: UNK
     Dates: start: 20090101
  5. DICYCLOMINE [Concomitant]
     Dosage: 20 MG, UNK
     Dates: start: 20090901
  6. SIMVASTATIN [Concomitant]
  7. YAZ [Suspect]
     Dosage: UNK UNK, UNK
     Route: 048
     Dates: start: 20050101, end: 20090101

REACTIONS (4)
  - CHOLECYSTECTOMY [None]
  - PAIN [None]
  - CHOLECYSTITIS ACUTE [None]
  - INJURY [None]
